FAERS Safety Report 15153522 (Version 1)
Quarter: 2018Q3

REPORT INFORMATION
  Report Type: Spontaneous
  Country: AU (occurrence: AU)
  Receive Date: 20180717
  Receipt Date: 20180717
  Transmission Date: 20181010
  Serious: Yes (Other)
  Sender: FDA-Public Use
  Company Number: AU-TEVA-2018-AU-923918

PATIENT
  Sex: Male

DRUGS (2)
  1. IMATINIB [Suspect]
     Active Substance: IMATINIB
     Route: 065
  2. NILOTINIB [Suspect]
     Active Substance: NILOTINIB
     Route: 065

REACTIONS (4)
  - Malignant neoplasm progression [Unknown]
  - Cytogenetic analysis abnormal [Unknown]
  - Diarrhoea [Unknown]
  - Pleural effusion [Unknown]
